FAERS Safety Report 6094144-9 (Version None)
Quarter: 2009Q1

REPORT INFORMATION
  Report Type: 
  Country: None (occurrence: None)
  Receive Date: 20090226
  Receipt Date: 20090130
  Transmission Date: 20090719
  Serious: Yes (Hospitalization, Other)
  Sender: FDA-Public Use
  Company Number: FR-PFIZER INC-2009164365

PATIENT

DRUGS (6)
  1. TAHOR [Suspect]
     Dosage: 10 MG, UNK
     Route: 048
  2. DIGOXIN [Interacting]
     Indication: DYSPNOEA
     Dosage: UNK
     Route: 048
     Dates: start: 20080531, end: 20080606
  3. DIGOXIN [Interacting]
     Indication: PAROXYSMAL ARRHYTHMIA
  4. LASIX [Interacting]
     Dosage: 40 MG, UNK
     Route: 048
  5. KARDEGIC [Interacting]
     Dosage: 160 MG, UNK
     Route: 048
  6. AERIUS [Concomitant]
     Dosage: UNK

REACTIONS (1)
  - OVERDOSE [None]
